FAERS Safety Report 8720981 (Version 5)
Quarter: 2013Q1

REPORT INFORMATION
  Report Type: Spontaneous
  Country: US (occurrence: US)
  Receive Date: 20120813
  Receipt Date: 20130306
  Transmission Date: 20140127
  Serious: Yes (Other)
  Sender: FDA-Public Use
  Company Number: US-ASTRAZENECA-2012SE55119

PATIENT
  Age: 68 Year
  Sex: Female
  Weight: 49.9 kg

DRUGS (7)
  1. SEROQUEL XR [Suspect]
     Indication: SLEEP DISORDER
     Route: 048
  2. SEROQUEL XR [Suspect]
     Indication: SLEEP DISORDER
     Route: 048
     Dates: start: 2011
  3. SEROQUEL XR [Suspect]
     Indication: SLEEP DISORDER
     Route: 048
     Dates: start: 2012
  4. SEROQUEL XR [Suspect]
     Indication: SLEEP DISORDER
     Route: 048
  5. GABAPENTIN [Concomitant]
  6. MIRTAZAPINE [Concomitant]
  7. ALPRAZOLAM [Concomitant]

REACTIONS (14)
  - Accident [Unknown]
  - Skin cancer [Unknown]
  - Pain [Unknown]
  - Adverse event [Unknown]
  - Insomnia [Unknown]
  - Infection [Unknown]
  - Hyperventilation [Unknown]
  - Meniere^s disease [Unknown]
  - Speech disorder [Unknown]
  - Sleep disorder due to a general medical condition [Unknown]
  - Feeling hot [Unknown]
  - Intentional drug misuse [Unknown]
  - Drug ineffective [Unknown]
  - Therapeutic response unexpected [Unknown]
